FAERS Safety Report 6161049-4 (Version None)
Quarter: 2009Q2

REPORT INFORMATION
  Report Type: 
  Country: None (occurrence: None)
  Receive Date: 20090420
  Receipt Date: 20090408
  Transmission Date: 20091009
  Serious: Yes (Other)
  Sender: FDA-Public Use
  Company Number: US-PFIZER INC-2009174425

PATIENT
  Sex: Male
  Weight: 72.574 kg

DRUGS (5)
  1. ZOLOFT [Suspect]
     Indication: DEPRESSION
     Dosage: 50 MG, 1X/DAY
     Route: 048
     Dates: start: 20090214
  2. ASPIRIN [Concomitant]
     Dosage: UNK
  3. PRILOSEC [Concomitant]
     Dosage: 20 MG, UNK
  4. VALIUM [Concomitant]
     Indication: BRUXISM
     Dosage: 5 MG, UNK
  5. ACETYLSALICYLIC ACID [Concomitant]

REACTIONS (4)
  - DRUG INEFFECTIVE [None]
  - PHOTOPSIA [None]
  - VISUAL IMPAIRMENT [None]
  - VITREOUS DETACHMENT [None]
